FAERS Safety Report 5922596-0 (Version None)
Quarter: 2008Q4

REPORT INFORMATION
  Report Type: 
  Country: None (occurrence: None)
  Receive Date: 20081017
  Receipt Date: 20081013
  Transmission Date: 20090506
  Serious: Yes (Other)
  Sender: FDA-Public Use
  Company Number: PHEH2008US09156

PATIENT
  Sex: Female

DRUGS (1)
  1. TEKTURNA [Suspect]
     Dosage: UNK
     Dates: start: 20080501

REACTIONS (6)
  - CONTUSION [None]
  - CYST [None]
  - FALL [None]
  - HAEMORRHAGE [None]
  - POLYURIA [None]
  - SKIN ATROPHY [None]
